FAERS Safety Report 7422067-9 (Version None)
Quarter: 2011Q2

REPORT INFORMATION
  Report Type: 
  Country: None (occurrence: None)
  Receive Date: 20110418
  Receipt Date: 20110411
  Transmission Date: 20111010
  Serious: Yes (Hospitalization)
  Sender: FDA-Public Use
  Company Number: US-B.I. PHARMACEUTICALS,INC./RIDGEFIELD-2011-BP-03797BP

PATIENT
  Sex: Male

DRUGS (5)
  1. DIOVAN [Concomitant]
  2. LIPITOR [Concomitant]
  3. ATENOLOL [Concomitant]
  4. PRADAXA [Suspect]
     Indication: ATRIAL FIBRILLATION
     Dosage: 300 MG
  5. DILTIAZEM [Concomitant]

REACTIONS (1)
  - ATRIAL FIBRILLATION [None]
